FAERS Safety Report 8038723-8 (Version None)
Quarter: 2012Q1

REPORT INFORMATION
  Report Type: 
  Country: None (occurrence: None)
  Receive Date: 20120111
  Receipt Date: 20111205
  Transmission Date: 20120608
  Serious: No
  Sender: FDA-Public Use
  Company Number: US-AMGEN-USASP2011064594

PATIENT
  Age: 57 Year
  Sex: Female

DRUGS (2)
  1. ENBREL [Suspect]
     Indication: RHEUMATOID ARTHRITIS
     Dosage: 50 MG, QWK
     Dates: start: 20110115, end: 20110901
  2. METHOTREXATE [Concomitant]
     Dosage: 4 MG, UNK
     Dates: start: 20100101

REACTIONS (12)
  - FATIGUE [None]
  - SKIN BURNING SENSATION [None]
  - SLUGGISHNESS [None]
  - BACK PAIN [None]
  - JOINT SWELLING [None]
  - ARTHRALGIA [None]
  - PRURITUS [None]
  - CHONDROPATHY [None]
  - MUSCULOSKELETAL DISCOMFORT [None]
  - CARDIAC DISORDER [None]
  - URTICARIA [None]
  - PAIN IN EXTREMITY [None]
